FAERS Safety Report 18452539 (Version 1)
Quarter: 2020Q4

REPORT INFORMATION
  Report Type: Spontaneous
  Country: US (occurrence: US)
  Receive Date: 20201102
  Receipt Date: 20201102
  Transmission Date: 20210114
  Serious: Yes (Hospitalization)
  Sender: FDA-Public Use
  Company Number: US-MYLANLABS-2020M1090839

PATIENT
  Age: 70 Year
  Sex: Female

DRUGS (5)
  1. ALBUTEROL                          /00139501/ [Concomitant]
     Active Substance: ALBUTEROL
     Indication: ASTHMA
     Route: 065
  2. FAMOTIDINE. [Suspect]
     Active Substance: FAMOTIDINE
     Indication: GASTROOESOPHAGEAL REFLUX DISEASE
     Route: 065
  3. THEOPHYLLINE [Interacting]
     Active Substance: THEOPHYLLINE ANHYDROUS
     Indication: ASTHMA
     Route: 065
  4. TRIAMTERENE AND HYDROCHLOROTHIAZIDE [Concomitant]
     Active Substance: HYDROCHLOROTHIAZIDE\TRIAMTERENE
     Indication: HYPERTENSION
     Route: 065
  5. ALLOPURINOL. [Interacting]
     Active Substance: ALLOPURINOL
     Indication: GOUT
     Route: 065

REACTIONS (16)
  - Drug interaction [Recovered/Resolved]
  - Hyperhidrosis [Recovered/Resolved]
  - Ventricular tachycardia [Recovered/Resolved]
  - Toxicity to various agents [Recovered/Resolved]
  - Vomiting [Recovered/Resolved]
  - Diarrhoea [Recovered/Resolved]
  - Tremor [Recovered/Resolved]
  - Confusional state [Recovered/Resolved]
  - Troponin increased [Recovered/Resolved]
  - Myocardial ischaemia [Recovered/Resolved]
  - Tachycardia [Recovered/Resolved]
  - Acute myocardial infarction [Recovered/Resolved]
  - Dyspnoea [Recovered/Resolved]
  - Electrocardiogram ST segment depression [Recovered/Resolved]
  - Hallucination, visual [Recovered/Resolved]
  - Chest discomfort [Recovered/Resolved]
